FAERS Safety Report 7304991-0 (Version None)
Quarter: 2011Q1

REPORT INFORMATION
  Report Type: 
  Country: None (occurrence: None)
  Receive Date: 20110222
  Receipt Date: 20100701
  Transmission Date: 20110831
  Serious: No
  Sender: FDA-Public Use
  Company Number: US-PFIZER INC-2010083113

PATIENT
  Sex: Female
  Weight: 54.422 kg

DRUGS (6)
  1. SYNTHROID [Concomitant]
     Indication: THYROID DISORDER
     Dosage: 150 UG, 1X/DAY
     Route: 048
  2. PREMARIN [Concomitant]
     Dosage: 0.9 MG, DAILY
     Route: 048
  3. XALATAN [Suspect]
     Indication: GLAUCOMA
     Dosage: 1 GTT, DAILY
     Route: 047
     Dates: start: 20100101
  4. QUININE [Concomitant]
     Indication: MUSCLE SPASMS
     Dosage: 300 MG, DAILY
     Route: 048
  5. POTASSIUM [Concomitant]
     Indication: BLOOD POTASSIUM DECREASED
     Dosage: UNK, DAILY
     Route: 048
  6. TRIAMTERENE AND HYDROCHLOROTHIAZIDE [Concomitant]
     Indication: HYPERTENSION
     Dosage: 75/50 MG, DAILY
     Route: 048

REACTIONS (8)
  - DIZZINESS [None]
  - EAR CONGESTION [None]
  - EXPIRED DRUG ADMINISTERED [None]
  - OCULAR HYPERAEMIA [None]
  - EYE IRRITATION [None]
  - BALANCE DISORDER [None]
  - HEADACHE [None]
  - SINUS CONGESTION [None]
